FAERS Safety Report 15947077 (Version 1)
Quarter: 2019Q1

REPORT INFORMATION
  Report Type: Spontaneous
  Country: US (occurrence: US)
  Receive Date: 20190211
  Receipt Date: 20190211
  Transmission Date: 20190417
  Serious: Yes (Other)
  Sender: FDA-Public Use
  Company Number: US-TEVA-2019-US-1009575

PATIENT
  Sex: Female

DRUGS (1)
  1. COPAXONE [Suspect]
     Active Substance: GLATIRAMER ACETATE
     Indication: MULTIPLE SCLEROSIS
     Dosage: FORM STRENGTH: UNKNOWN
     Route: 065

REACTIONS (8)
  - Multiple sclerosis relapse [Unknown]
  - Walking aid user [Unknown]
  - Oscillopsia [Unknown]
  - Optic neuritis [Unknown]
  - Diplopia [Unknown]
  - Balance disorder [Unknown]
  - Mobility decreased [Unknown]
  - Vertigo [Unknown]
